FAERS Safety Report 7004059-7 (Version None)
Quarter: 2010Q3

REPORT INFORMATION
  Report Type: 
  Country: None (occurrence: None)
  Receive Date: 20100920
  Receipt Date: 20100108
  Transmission Date: 20110219
  Serious: No
  Sender: FDA-Public Use
  Company Number: US-WYE-H12943110

PATIENT
  Sex: Female
  Weight: 97.61 kg

DRUGS (4)
  1. PRISTIQ [Suspect]
     Indication: DEPRESSION
     Route: 048
     Dates: start: 20091101
  2. PRISTIQ [Suspect]
     Indication: ANXIETY
  3. HYDROCODONE [Concomitant]
  4. LORAZEPAM [Concomitant]

REACTIONS (5)
  - DIZZINESS [None]
  - DRUG INEFFECTIVE [None]
  - HYPOAESTHESIA [None]
  - MEDICATION RESIDUE [None]
  - PANIC DISORDER [None]
